FAERS Safety Report 16470593 (Version 4)
Quarter: 2024Q3

REPORT INFORMATION
  Report Type: Report from Study
  Country: JP (occurrence: JP)
  Receive Date: 20190624
  Receipt Date: 20240912
  Transmission Date: 20241017
  Serious: Yes (Life-Threatening, Hospitalization, Other)
  Sender: GLAXOSMITHKLINE
  Company Number: JP-GLAXOSMITHKLINE-JP2019JPN112121

PATIENT

DRUGS (28)
  1. BELIMUMAB [Suspect]
     Active Substance: BELIMUMAB
     Indication: Systemic lupus erythematosus
     Dosage: 10 MG/KG, QD
     Route: 041
     Dates: start: 20180725, end: 20180725
  2. BELIMUMAB [Suspect]
     Active Substance: BELIMUMAB
     Indication: Lupus nephritis
  3. PREDONINE [Concomitant]
     Active Substance: PREDNISOLONE
     Indication: Systemic lupus erythematosus
     Dosage: UNK
  4. PREDONINE [Concomitant]
     Active Substance: PREDNISOLONE
     Dosage: 25 MG, 1D
     Dates: start: 20180725, end: 20180731
  5. PREDONINE [Concomitant]
     Active Substance: PREDNISOLONE
     Dosage: 22.5 MG, 1D
     Dates: start: 20180801, end: 20180807
  6. PREDONINE [Concomitant]
     Active Substance: PREDNISOLONE
     Dosage: 20 MG, 1D
     Dates: start: 20180808, end: 20180814
  7. PREDONINE [Concomitant]
     Active Substance: PREDNISOLONE
     Dosage: 15 MG, 1D
     Dates: start: 20180815, end: 20180815
  8. PREDONINE [Concomitant]
     Active Substance: PREDNISOLONE
     Dosage: 18 MG, 1D
     Dates: start: 20180816, end: 20180828
  9. PREDONINE [Concomitant]
     Active Substance: PREDNISOLONE
     Dosage: 17 MG, 1D
     Dates: start: 20180829, end: 20180911
  10. PREDONINE [Concomitant]
     Active Substance: PREDNISOLONE
     Dosage: 16 MG, 1D
     Dates: start: 20180912, end: 20180918
  11. PREDONINE [Concomitant]
     Active Substance: PREDNISOLONE
     Dosage: 15 MG, 1D
     Dates: start: 20180919, end: 20181017
  12. PREDNISOLONE SODIUM SUCCINATE [Concomitant]
     Active Substance: PREDNISOLONE SODIUM SUCCINATE
     Indication: Systemic lupus erythematosus
     Dosage: 15 MG, 1D
     Dates: start: 20181018
  13. HYDROXYCHLOROQUINE [Concomitant]
     Active Substance: HYDROXYCHLOROQUINE
     Indication: Systemic lupus erythematosus
     Dosage: UNK
  14. PROGRAF [Concomitant]
     Active Substance: TACROLIMUS
     Indication: Systemic lupus erythematosus
     Dosage: 3 MG, UNK
  15. ALFACALCIDOL [Concomitant]
     Active Substance: ALFACALCIDOL
     Dosage: UNK
  16. ESOMEPRAZOLE [Concomitant]
     Active Substance: ESOMEPRAZOLE
     Dosage: UNK
  17. ITRACONAZOLE [Concomitant]
     Active Substance: ITRACONAZOLE
     Indication: Prophylaxis
     Dosage: UNK
  18. ASPIRIN [Concomitant]
     Active Substance: ASPIRIN
     Dosage: UNK
  19. PRASUGREL HYDROCHLORIDE [Concomitant]
     Active Substance: PRASUGREL HYDROCHLORIDE
     Dosage: UNK
  20. TELMISARTAN [Concomitant]
     Active Substance: TELMISARTAN
     Dosage: UNK
  21. ROSUVASTATIN [Concomitant]
     Active Substance: ROSUVASTATIN\ROSUVASTATIN CALCIUM
     Dosage: UNK
  22. FUROSEMIDE [Concomitant]
     Active Substance: FUROSEMIDE
     Dosage: UNK
  23. MOSAPRIDE [Concomitant]
     Active Substance: MOSAPRIDE
     Dosage: UNK
  24. SULFAMETHOXAZOLE\TRIMETHOPRIM [Concomitant]
     Active Substance: SULFAMETHOXAZOLE\TRIMETHOPRIM
     Indication: Antifungal prophylaxis
     Dosage: UNK
  25. NIFEDIPINE [Concomitant]
     Active Substance: NIFEDIPINE
     Dosage: UNK
  26. FLUNITRAZEPAM [Concomitant]
     Active Substance: FLUNITRAZEPAM
     Dosage: UNK
  27. ZOLPIDEM [Concomitant]
     Active Substance: ZOLPIDEM TARTRATE
     Dosage: UNK
  28. OMEPRAZOLE [Concomitant]
     Active Substance: OMEPRAZOLE
     Dosage: UNK

REACTIONS (2)
  - Lymphocyte count decreased [Recovered/Resolved]
  - Pneumonia [Recovered/Resolved]

NARRATIVE: CASE EVENT DATE: 20180801
